FAERS Safety Report 14046106 (Version 5)
Quarter: 2018Q2

REPORT INFORMATION
  Report Type: Report from Study
  Country: US (occurrence: US)
  Receive Date: 20171005
  Receipt Date: 20180409
  Transmission Date: 20180711
  Serious: Yes (Other)
  Sender: FDA-Public Use
  Company Number: PHEH2017US032035

PATIENT
  Sex: Female

DRUGS (2)
  1. FUROSEMIDE TABLETS USP [Suspect]
     Active Substance: FUROSEMIDE
     Indication: CARDIAC DISORDER
     Route: 065
  2. ENTRESTO [Suspect]
     Active Substance: SACUBITRIL\VALSARTAN
     Indication: PRODUCT USED FOR UNKNOWN INDICATION
     Route: 048

REACTIONS (7)
  - Excessive cerumen production [Unknown]
  - Ear pain [Unknown]
  - Deafness [Unknown]
  - Pollakiuria [Unknown]
  - Confusional state [Unknown]
  - Pain [Unknown]
  - Dyspnoea [Unknown]
